FAERS Safety Report 5418163-8 (Version None)
Quarter: 2007Q3

REPORT INFORMATION
  Report Type: 
  Country: None (occurrence: None)
  Receive Date: 20070817
  Receipt Date: 20070804
  Transmission Date: 20080115
  Serious: Yes (Hospitalization)
  Sender: FDA-Public Use
  Company Number: US-ELI_LILLY_AND_COMPANY-US200708001010

PATIENT
  Age: 53 Year
  Sex: Female

DRUGS (15)
  1. BYETTA [Suspect]
     Indication: TYPE 2 DIABETES MELLITUS
     Dosage: 5 UG, 2/D
     Route: 058
     Dates: start: 20050501, end: 20050801
  2. BYETTA [Suspect]
     Dosage: 10 UG, 2/D
     Route: 058
     Dates: start: 20050801, end: 20070401
  3. BYETTA [Suspect]
     Dosage: 10 UG, EACH EVENING
     Route: 058
     Dates: start: 20070401
  4. GLUCOVANCE [Concomitant]
     Indication: TYPE 2 DIABETES MELLITUS
     Dosage: UNK D/F, 2/D
     Route: 048
  5. ACTOS [Concomitant]
     Indication: TYPE 2 DIABETES MELLITUS
     Dosage: 45 MG, DAILY (1/D)
     Route: 048
  6. LANTUS [Concomitant]
     Indication: TYPE 2 DIABETES MELLITUS
     Dosage: 10 U, OTHER
     Route: 058
     Dates: start: 20061101
  7. LANTUS [Concomitant]
     Dosage: 20 U, OTHER
     Route: 058
  8. DIOVAN /SCH/ [Concomitant]
     Indication: HYPERTENSION
     Dosage: 160 MG, DAILY (1/D)
     Route: 048
  9. TRICOR [Concomitant]
     Indication: BLOOD CHOLESTEROL
     Dosage: 145 MG, DAILY (1/D)
     Route: 048
  10. CRESTOR [Concomitant]
     Indication: BLOOD CHOLESTEROL
     Dosage: 10 MG, DAILY (1/D)
     Route: 048
  11. PREVACID [Concomitant]
     Indication: ULCER
     Dosage: 30 MG, DAILY (1/D)
     Route: 048
  12. WELLBUTRIN XL [Concomitant]
     Indication: DEPRESSION
     Dosage: 300 MG, DAILY (1/D)
     Route: 048
     Dates: start: 20030101
  13. ASPIRIN [Concomitant]
     Indication: CARDIAC DISORDER
     Dosage: 81 MG, DAILY (1/D)
     Route: 048
  14. VITAMIN B-12 [Concomitant]
     Dosage: UNK, DAILY (1/D)
     Route: 048
  15. MULTI-VITAMIN [Concomitant]
     Dosage: UNK, DAILY (1/D)
     Route: 048

REACTIONS (6)
  - CHEST PAIN [None]
  - COLLAPSE OF LUNG [None]
  - LUNG DISORDER [None]
  - MUSCLE SPASMS [None]
  - NAUSEA [None]
  - VOMITING [None]
